FAERS Safety Report 23922508 (Version 4)
Quarter: 2024Q4

REPORT INFORMATION
  Report Type: Report from Study
  Country: JP (occurrence: JP)
  Receive Date: 20240531
  Receipt Date: 20241018
  Transmission Date: 20250114
  Serious: Yes (Hospitalization, Other)
  Sender: AKEBIA THERAPEUTICS
  Company Number: JP-MTPC-MTPC2022-0028678

PATIENT
  Age: 80 Year
  Sex: Female
  Weight: 62.2 kg

DRUGS (51)
  1. VADADUSTAT [Suspect]
     Active Substance: VADADUSTAT
     Indication: Nephrogenic anaemia
     Dosage: 300 MILLIGRAM, QD
     Route: 048
     Dates: start: 20220105, end: 20220301
  2. VADADUSTAT [Suspect]
     Active Substance: VADADUSTAT
     Dosage: 150 MILLIGRAM, QD
     Route: 048
     Dates: start: 20220302, end: 20220405
  3. VADADUSTAT [Suspect]
     Active Substance: VADADUSTAT
     Dosage: 300 MILLIGRAM, QD
     Route: 048
     Dates: start: 20220406, end: 20220510
  4. VADADUSTAT [Suspect]
     Active Substance: VADADUSTAT
     Dosage: 150 MILLIGRAM, QD
     Route: 048
     Dates: start: 20220511, end: 20220713
  5. VADADUSTAT [Suspect]
     Active Substance: VADADUSTAT
     Dosage: 75 MILLIGRAM, QD
     Route: 048
     Dates: start: 20220714, end: 20220914
  6. VADADUSTAT [Suspect]
     Active Substance: VADADUSTAT
     Dosage: 150 MILLIGRAM, QD
     Route: 048
     Dates: start: 20220915, end: 20221207
  7. VADADUSTAT [Suspect]
     Active Substance: VADADUSTAT
     Dosage: 300 MILLIGRAM, QD
     Route: 048
     Dates: start: 20221208, end: 20230201
  8. VADADUSTAT [Suspect]
     Active Substance: VADADUSTAT
     Dosage: 150 MILLIGRAM, QD
     Route: 048
     Dates: start: 20230202, end: 20230518
  9. CEFAZOLIN SODIUM [Suspect]
     Active Substance: CEFAZOLIN SODIUM
     Indication: Adverse event
     Dosage: 1 GRAM, QD
     Route: 051
     Dates: start: 20220316, end: 20220329
  10. CEFTAZIDIME [Suspect]
     Active Substance: CEFTAZIDIME
     Indication: Adverse event
     Dosage: 1 GRAM, QD
     Route: 042
     Dates: start: 20220316, end: 20220320
  11. MINOCYCLINE HYDROCHLORIDE [Suspect]
     Active Substance: MINOCYCLINE HYDROCHLORIDE
     Indication: Adverse event
     Dosage: 200 MILLIGRAM, QD
     Route: 048
     Dates: start: 20230405, end: 20230508
  12. DAPRODUSTAT [Concomitant]
     Active Substance: DAPRODUSTAT
     Indication: Nephrogenic anaemia
     Dosage: 4 MILLIGRAM, QD
     Route: 048
     Dates: start: 20211014, end: 20211020
  13. DAPRODUSTAT [Concomitant]
     Active Substance: DAPRODUSTAT
     Dosage: 6 MILLIGRAM, QD
     Route: 048
     Dates: start: 20211021, end: 20211101
  14. SITAGLIPTIN [Concomitant]
     Active Substance: SITAGLIPTIN
     Indication: Illness
     Dosage: 12.5 MILLIGRAM, QD
     Route: 048
     Dates: start: 20220202, end: 20220329
  15. TRAZODONE HYDROCHLORIDE [Concomitant]
     Active Substance: TRAZODONE HYDROCHLORIDE
     Indication: Insomnia
     Dosage: 12.5 MILLIGRAM, QD
     Route: 048
     Dates: start: 20220302, end: 20220510
  16. TRAZODONE HYDROCHLORIDE [Concomitant]
     Active Substance: TRAZODONE HYDROCHLORIDE
     Indication: Illness
     Dosage: 25 MILLIGRAM, QD
     Route: 048
     Dates: start: 20220511, end: 20230515
  17. TRAZODONE HYDROCHLORIDE [Concomitant]
     Active Substance: TRAZODONE HYDROCHLORIDE
     Dosage: 12.5 MILLIGRAM, QD
     Route: 048
     Dates: start: 20230516
  18. KETOPROFEN [Concomitant]
     Active Substance: KETOPROFEN
     Indication: Illness
     Dosage: UNK, PRN
     Route: 062
     Dates: start: 20220328, end: 20220405
  19. FELBINAC [Concomitant]
     Active Substance: FELBINAC
     Indication: Illness
     Dosage: UNK, PRN
     Route: 062
     Dates: start: 20220406
  20. P TOL [SUCROFERRIC OXYHYDROXIDE] [Concomitant]
     Indication: Product used for unknown indication
     Dosage: 500 MILLIGRAM, QD
     Route: 048
     Dates: start: 20220511, end: 20220713
  21. LANTHANUM CARBONATE [Concomitant]
     Active Substance: LANTHANUM CARBONATE
     Indication: Product used for unknown indication
     Dosage: 750 MILLIGRAM, QD
     Route: 048
     Dates: start: 20220714, end: 20230508
  22. PRANLUKAST [Concomitant]
     Active Substance: PRANLUKAST
     Indication: Illness
     Dosage: 450 MILLIGRAM, QD
     Route: 048
     Dates: start: 20220922, end: 20221013
  23. MOVICOL [Concomitant]
     Active Substance: POLYETHYLENE GLYCOL 3350\POTASSIUM CHLORIDE\SODIUM BICARBONATE\SODIUM CHLORIDE
     Indication: Illness
     Dosage: 2 DOSAGE FORM, QD
     Route: 048
     Dates: start: 20221208, end: 20230428
  24. MOVICOL [Concomitant]
     Active Substance: POLYETHYLENE GLYCOL 3350\POTASSIUM CHLORIDE\SODIUM BICARBONATE\SODIUM CHLORIDE
     Dosage: 1 DOSAGE FORM, QD
     Route: 048
     Dates: start: 20230429, end: 20230502
  25. SENNOSIDES A AND B [Concomitant]
     Active Substance: SENNOSIDES A AND B
     Indication: Illness
     Dosage: UNK, PRN
     Route: 048
     Dates: start: 20221208
  26. HEPARINOID [Concomitant]
     Indication: Illness
     Dosage: UNK, PRN
     Route: 062
     Dates: start: 20230419
  27. DEXAMETHASONE DIPROPIONATE [Concomitant]
     Active Substance: DEXAMETHASONE DIPROPIONATE
     Indication: Illness
     Dosage: UNK, PRN
     Route: 062
     Dates: start: 20230419, end: 20230429
  28. NOVAMINE [Concomitant]
     Active Substance: ALANINE\ARGININE\ASPARTIC ACID\GLUTAMIC ACID\GLYCINE\HISTIDINE\ISOLEUCINE\LEUCINE\LYSINE ACETATE\MET
     Indication: Prophylaxis
     Dosage: 5 MILLIGRAM, QD
     Route: 048
     Dates: start: 20230508, end: 20230508
  29. NOVAMINE [Concomitant]
     Active Substance: ALANINE\ARGININE\ASPARTIC ACID\GLUTAMIC ACID\GLYCINE\HISTIDINE\ISOLEUCINE\LEUCINE\LYSINE ACETATE\MET
     Dosage: 15 MILLIGRAM, QD
     Route: 048
     Dates: start: 20230509, end: 20230516
  30. DAPRODUSTAT [Concomitant]
     Active Substance: DAPRODUSTAT
     Indication: Nephrogenic anaemia
     Dosage: UNK
     Route: 048
     Dates: start: 20230519
  31. DARBEPOETIN ALFA [Concomitant]
     Active Substance: DARBEPOETIN ALFA
     Indication: Nephrogenic anaemia
     Dosage: 120 MICROGRAM, Q2WEEKS
     Route: 042
     Dates: end: 20211102
  32. DARBEPOETIN ALFA [Concomitant]
     Active Substance: DARBEPOETIN ALFA
     Dosage: 180 MICROGRAM, QD
     Route: 058
     Dates: start: 20211209, end: 20211209
  33. AMLODIPINE BESYLATE\ATORVASTATIN CALCIUM [Concomitant]
     Active Substance: AMLODIPINE BESYLATE\ATORVASTATIN CALCIUM
     Indication: Product used for unknown indication
     Dosage: 1 DOSAGE FORM, QD
     Route: 048
     Dates: end: 20220316
  34. SPIRONOLACTONE [Concomitant]
     Active Substance: SPIRONOLACTONE
     Indication: Product used for unknown indication
     Dosage: 25 MILLIGRAM, QD
     Route: 048
     Dates: end: 20211208
  35. SPIRONOLACTONE [Concomitant]
     Active Substance: SPIRONOLACTONE
     Dosage: 50 MILLIGRAM, QD
     Route: 048
     Dates: start: 20211209, end: 20220405
  36. SPIRONOLACTONE [Concomitant]
     Active Substance: SPIRONOLACTONE
     Dosage: 25 MILLIGRAM, QD
     Route: 048
     Dates: start: 20220406, end: 20230406
  37. AZOSEMIDE [Concomitant]
     Active Substance: AZOSEMIDE
     Indication: Illness
     Dosage: 120 MILLIGRAM, QD
     Route: 048
     Dates: end: 20221109
  38. BELSOMRA [Concomitant]
     Active Substance: SUVOREXANT
     Indication: Illness
     Dosage: 15 MILLIGRAM, QD
     Route: 048
     Dates: end: 20220301
  39. LUNESTA [Concomitant]
     Active Substance: ESZOPICLONE
     Indication: Illness
     Dosage: 1 MILLIGRAM, QD
     Route: 048
     Dates: end: 20220301
  40. FEXOFENADINE HYDROCHLORIDE [Concomitant]
     Active Substance: FEXOFENADINE HYDROCHLORIDE
     Indication: Illness
     Dosage: 60 MILLIGRAM, QD
     Route: 048
     Dates: end: 20220316
  41. FEXOFENADINE HYDROCHLORIDE [Concomitant]
     Active Substance: FEXOFENADINE HYDROCHLORIDE
     Dosage: 60 MILLIGRAM, QD
     Route: 048
     Dates: end: 20230508
  42. GLYCOSAMINOGLYCANS [Concomitant]
     Active Substance: GLYCOSAMINOGLYCANS
     Indication: Illness
     Dosage: UNK, PRN
     Route: 062
     Dates: end: 20230418
  43. CALONAL [Concomitant]
     Active Substance: ACETAMINOPHEN
     Indication: Illness
     Dosage: 800 MILLIGRAM, QD
     Route: 048
     Dates: end: 20220301
  44. CALONAL [Concomitant]
     Active Substance: ACETAMINOPHEN
     Dosage: UNK, PRN
     Route: 048
     Dates: start: 20220302
  45. DAYVIGO [Concomitant]
     Active Substance: LEMBOREXANT
     Indication: Illness
     Dosage: 5 MILLIGRAM, QD
     Route: 048
     Dates: end: 20220608
  46. DAYVIGO [Concomitant]
     Active Substance: LEMBOREXANT
     Dosage: 10 MILLIGRAM, QD
     Route: 048
     Dates: start: 20220609, end: 20230428
  47. DAYVIGO [Concomitant]
     Active Substance: LEMBOREXANT
     Dosage: 5 MILLIGRAM, QD
     Route: 048
     Dates: start: 20230429, end: 20230506
  48. DAYVIGO [Concomitant]
     Active Substance: LEMBOREXANT
     Dosage: 10 MILLIGRAM, QD
     Route: 048
     Dates: start: 20230507
  49. RINDERON VG [Concomitant]
     Active Substance: BETAMETHASONE VALERATE\GENTAMICIN SULFATE
     Indication: Product used for unknown indication
     Dosage: UNK
     Route: 062
  50. ZINC OXIDE [Concomitant]
     Active Substance: ZINC OXIDE
     Indication: Product used for unknown indication
     Dosage: UNK
     Route: 062
  51. LOXOPROFEN SODIUM [Concomitant]
     Active Substance: LOXOPROFEN SODIUM
     Indication: Illness
     Dosage: UNK UNK, PRN
     Route: 062

REACTIONS (11)
  - Skin ulcer [Recovering/Resolving]
  - Osteomyelitis [Recovering/Resolving]
  - Abscess limb [Recovered/Resolved]
  - Vertigo positional [Recovering/Resolving]
  - Peritonitis [Recovered/Resolved]
  - Decreased appetite [Recovering/Resolving]
  - Dermatitis [Recovered/Resolved]
  - Catheter site infection [Recovered/Resolved]
  - Catheter site infection [Recovered/Resolved]
  - Diarrhoea [Recovered/Resolved]
  - Diarrhoea [Recovered/Resolved]

NARRATIVE: CASE EVENT DATE: 20220119
